FAERS Safety Report 20974831 (Version 1)
Quarter: 2022Q2

REPORT INFORMATION
  Report Type: Report from Study
  Country: US (occurrence: US)
  Receive Date: 20220617
  Receipt Date: 20220617
  Transmission Date: 20220721
  Serious: Yes (Death)
  Sender: FDA-Public Use
  Company Number: MIQ-06072022-587(V1)

PATIENT
  Sex: Female

DRUGS (1)
  1. PEMFEXY [Suspect]
     Active Substance: PEMETREXED MONOHYDRATE
     Indication: Product used for unknown indication
     Dosage: UNK
     Route: 042

REACTIONS (1)
  - Death [Fatal]

NARRATIVE: CASE EVENT DATE: 20220521
